FAERS Safety Report 20680001 (Version 1)
Quarter: 2022Q2

REPORT INFORMATION
  Report Type: Spontaneous
  Country: PL (occurrence: None)
  Receive Date: 20220406
  Receipt Date: 20220406
  Transmission Date: 20220721
  Serious: Yes (Other)
  Sender: FDA-Public Use
  Company Number: PL-Orion Corporation ORION PHARMA-MARE2022-0019

PATIENT
  Age: 66 Year
  Sex: Male

DRUGS (14)
  1. SODIUM CHLORIDE [Suspect]
     Active Substance: SODIUM CHLORIDE
     Indication: Infection prophylaxis
     Dosage: SECOND DOSE, 0.9 PERCENT
     Route: 030
     Dates: start: 20180824, end: 20180824
  2. SODIUM CHLORIDE [Suspect]
     Active Substance: SODIUM CHLORIDE
     Dosage: SECOND DOSE, 0.9 PERCENT
     Route: 030
     Dates: start: 20180330, end: 20180330
  3. SODIUM CHLORIDE [Suspect]
     Active Substance: SODIUM CHLORIDE
     Dosage: SINGLE DOSE, 0.9 PERCENT
     Route: 030
     Dates: start: 20180227, end: 20180227
  4. WARFARIN [Suspect]
     Active Substance: WARFARIN
     Indication: Anticoagulant therapy
     Dosage: 5 MG, 1X2
     Route: 048
     Dates: start: 20181102, end: 20181108
  5. WARFARIN [Suspect]
     Active Substance: WARFARIN
     Dosage: 2 TABLETS PER DAY (5 MG) AND ADDITIONAL TWICE PER WEEK, 0.5 TABLET
     Route: 048
     Dates: start: 20181110
  6. WARFARIN [Suspect]
     Active Substance: WARFARIN
     Dosage: 2 TABLETS PER DAY AND ADDITIONAL TWICE PER WEEK 0.5 TABLET (TABLET - 5 MG)
     Route: 048
     Dates: start: 20180430, end: 20181101
  7. ATORVASTATIN CALCIUM [Concomitant]
     Active Substance: ATORVASTATIN CALCIUM
     Indication: Hyperlipidaemia
     Route: 065
     Dates: start: 20180219
  8. ASPIRIN [Concomitant]
     Active Substance: ASPIRIN
     Indication: Antiplatelet therapy
     Route: 065
     Dates: start: 2011
  9. POTASSIUM CHLORIDE [Concomitant]
     Active Substance: POTASSIUM CHLORIDE
     Indication: Mineral supplementation
     Route: 065
     Dates: start: 20180219
  10. METFORMIN HYDROCHLORIDE [Concomitant]
     Active Substance: METFORMIN HYDROCHLORIDE
     Indication: Type 2 diabetes mellitus
     Route: 065
     Dates: start: 201604
  11. PYRIDOXINE HYDROCHLORIDE/MAGNESIUM LACTATE [Concomitant]
     Indication: Prophylaxis
     Route: 065
     Dates: start: 20180802
  12. BISOPROLOL FUMARATE [Concomitant]
     Active Substance: BISOPROLOL FUMARATE
     Indication: Myocardial ischaemia
     Route: 065
     Dates: start: 20180727
  13. INSULIN HUMAN [Concomitant]
     Active Substance: INSULIN HUMAN
     Indication: Diabetes mellitus
     Route: 065
     Dates: start: 20170103, end: 20181117
  14. ALLOPURINOL [Concomitant]
     Active Substance: ALLOPURINOL
     Indication: Hyperuricaemia
     Route: 065
     Dates: start: 20180219

REACTIONS (3)
  - International normalised ratio increased [Unknown]
  - Accidental overdose [Unknown]
  - Haematuria [Recovered/Resolved]

NARRATIVE: CASE EVENT DATE: 20181102
